FAERS Safety Report 5814154-3 (Version None)
Quarter: 2008Q3

REPORT INFORMATION
  Report Type: 
  Country: None (occurrence: None)
  Receive Date: 20080717
  Receipt Date: 20080710
  Transmission Date: 20090109
  Serious: Yes (Life-Threatening, Other)
  Sender: FDA-Public Use
  Company Number: GB-PFIZER INC-2008058242

PATIENT
  Age: 56 Year
  Sex: Female
  Weight: 109 kg

DRUGS (5)
  1. LIPITOR [Suspect]
     Indication: HYPERLIPIDAEMIA
     Route: 048
     Dates: start: 20080603, end: 20080611
  2. BECLOMETHASONE DIPROPIONATE [Concomitant]
     Indication: COUGH
     Route: 055
  3. FELODIPINE [Concomitant]
     Indication: HYPERTENSION
     Route: 048
  4. MULTI-VITAMINS [Concomitant]
     Route: 048
  5. ALBUTEROL [Concomitant]
     Indication: COUGH
     Route: 055

REACTIONS (5)
  - AGGRESSION [None]
  - DEPRESSION [None]
  - EMOTIONAL DISORDER [None]
  - INSOMNIA [None]
  - SUICIDAL IDEATION [None]
